FAERS Safety Report 9747702 (Version 2)
Quarter: 2013Q4

REPORT INFORMATION
  Report Type: Spontaneous
  Country: US (occurrence: None)
  Receive Date: 20131206
  Receipt Date: 20131218
  Transmission Date: 20140711
  Serious: Yes (Life-Threatening, Hospitalization)
  Sender: FDA-Public Use
  Company Number: 2013EXPUS00156

PATIENT
  Age: 53 Year
  Sex: Female
  Weight: 94 kg

DRUGS (1)
  1. EXPAREL [Suspect]
     Indication: POSTOPERATIVE ANALGESIA
     Dates: start: 20131126, end: 20131126

REACTIONS (4)
  - Pulmonary oedema [None]
  - Acute pulmonary oedema [None]
  - Hypercapnia [None]
  - Acidosis [None]
